FAERS Safety Report 8597956-2 (Version None)
Quarter: 2012Q3

REPORT INFORMATION
  Report Type: 
  Country: None (occurrence: None)
  Receive Date: 20120803
  Receipt Date: 20120723
  Transmission Date: 20120928
  Serious: Yes (Other)
  Sender: FDA-Public Use
  Company Number: 1321368

PATIENT
  Age: 71 Year
  Sex: Female

DRUGS (13)
  1. ZOFRAN [Concomitant]
  2. DEXAMETHASONE SODIUM PHOSPHATE [Concomitant]
  3. (ESAFOSFINA) [Concomitant]
  4. ALLOPURINOL [Concomitant]
  5. LAMIVUDINE [Concomitant]
  6. METHOTREXATE [Suspect]
     Indication: CENTRAL NERVOUS SYSTEM LYMPHOMA
     Dosage: SEE IMAGE
     Route: 042
     Dates: start: 20111022
  7. METHOTREXATE [Suspect]
     Indication: CENTRAL NERVOUS SYSTEM LYMPHOMA
     Dosage: SEE IMAGE
     Route: 042
     Dates: start: 20111129
  8. METHOTREXATE [Suspect]
     Indication: CENTRAL NERVOUS SYSTEM LYMPHOMA
     Dosage: SEE IMAGE
     Route: 042
     Dates: start: 20111120
  9. LEUCOVORIN CALCIUM [Concomitant]
  10. PROMAZINE HYDROCHLORIDE [Concomitant]
  11. OMEPRAZOLE [Suspect]
     Indication: PROPHYLAXIS
     Dosage: 20 MG MILLIGRAM(S) ORAL
     Route: 048
     Dates: start: 20110927, end: 20111029
  12. ENOXAPARIN SODIUM [Concomitant]
  13. (GADRAL) [Concomitant]

REACTIONS (12)
  - BLOOD BILIRUBIN INCREASED [None]
  - ALANINE AMINOTRANSFERASE INCREASED [None]
  - BLOOD ALBUMIN DECREASED [None]
  - HEPATOTOXICITY [None]
  - BLOOD LACTATE DEHYDROGENASE INCREASED [None]
  - BRAIN INJURY [None]
  - PROTEIN TOTAL DECREASED [None]
  - BLOOD CREATININE DECREASED [None]
  - SEPTIC SHOCK [None]
  - NO THERAPEUTIC RESPONSE [None]
  - HEPATIC FUNCTION ABNORMAL [None]
  - ASPARTATE AMINOTRANSFERASE INCREASED [None]
